FAERS Safety Report 13872932 (Version 1)
Quarter: 2017Q3

REPORT INFORMATION
  Report Type: Spontaneous
  Country: US (occurrence: US)
  Receive Date: 20170816
  Receipt Date: 20170816
  Transmission Date: 20171127
  Serious: No
  Sender: FDA-Public Use
  Company Number: US-TARO-2017TAR00020

PATIENT
  Age: 84 Year
  Sex: Male
  Weight: 109.3 kg

DRUGS (5)
  1. UNKNOWN MULTIVITAMIN [Concomitant]
     Active Substance: VITAMINS
  2. BABY ASPIRIN [Concomitant]
     Active Substance: ASPIRIN
     Dosage: UNK
     Dates: start: 2012
  3. UNKNOWN BLOOD PRESSURE MEDICATION [Concomitant]
     Active Substance: UNSPECIFIED INGREDIENT
     Dosage: UNK
     Dates: start: 2002
  4. UNKNOWN PAIN MEDICATION [Concomitant]
     Active Substance: UNSPECIFIED INGREDIENT
     Dosage: UNK
     Dates: start: 2010
  5. TERBINAFINE HCL CREAM 1% (ATHLETES FOOT) [Suspect]
     Active Substance: TERBINAFINE HYDROCHLORIDE
     Indication: SKIN ABRASION
     Dosage: UNK UNK, 2X/DAY
     Route: 061
     Dates: start: 201612, end: 201701

REACTIONS (4)
  - Erythema [Recovering/Resolving]
  - Swelling [Recovering/Resolving]
  - Burning sensation [Recovering/Resolving]
  - Blister [Recovering/Resolving]

NARRATIVE: CASE EVENT DATE: 201701
